FAERS Safety Report 8062482-6 (Version None)
Quarter: 2012Q1

REPORT INFORMATION
  Report Type: 
  Country: None (occurrence: None)
  Receive Date: 20120123
  Receipt Date: 20120118
  Transmission Date: 20120608
  Serious: Yes (Hospitalization, Other)
  Sender: FDA-Public Use
  Company Number: US-AMGEN-USASP2011058612

PATIENT
  Age: 49 Year
  Sex: Female

DRUGS (2)
  1. ENBREL [Suspect]
     Indication: RHEUMATOID ARTHRITIS
     Dosage: 50 MG, QWK
     Dates: start: 20110201
  2. ANTIBIOTICS [Concomitant]
     Dosage: UNK

REACTIONS (10)
  - RETCHING [None]
  - OBESITY [None]
  - INTESTINAL OBSTRUCTION [None]
  - BRONCHITIS [None]
  - POSTOPERATIVE ADHESION [None]
  - INTERNAL HERNIA [None]
  - ABDOMINAL PAIN [None]
  - DIARRHOEA [None]
  - LARYNGITIS [None]
  - SINUSITIS [None]
